FAERS Safety Report 4933941-7 (Version None)
Quarter: 2006Q1

REPORT INFORMATION
  Report Type: 
  Country: None (occurrence: None)
  Receive Date: 20060303
  Receipt Date: 20060220
  Transmission Date: 20060701
  Serious: Yes (Other)
  Sender: FDA-Public Use
  Company Number: 2006024981

PATIENT

DRUGS (1)
  1. UNISOM [Suspect]
     Dosage: 24 TABLETS AT ONE TIME, ORAL
     Route: 048
     Dates: start: 20060220, end: 20060220

REACTIONS (2)
  - DEPRESSED LEVEL OF CONSCIOUSNESS [None]
  - OVERDOSE [None]
